FAERS Safety Report 11645102 (Version 1)
Quarter: 2015Q4

REPORT INFORMATION
  Report Type: Spontaneous
  Country: US (occurrence: US)
  Receive Date: 20151020
  Receipt Date: 20151020
  Transmission Date: 20160304
  Serious: No
  Sender: FDA-Public Use
  Company Number: US-BAYER-2015-445305

PATIENT
  Age: 80 Year
  Sex: Female
  Weight: 47.17 kg

DRUGS (1)
  1. MIRALAX [Suspect]
     Active Substance: POLYETHYLENE GLYCOL 3350
     Indication: CONSTIPATION
     Dosage: 1 DF, QD
     Route: 048
     Dates: start: 201509, end: 201510

REACTIONS (4)
  - Diarrhoea [None]
  - Diarrhoea [None]
  - Product use issue [None]
  - Defaecation urgency [None]

NARRATIVE: CASE EVENT DATE: 201509
